FAERS Safety Report 7824755-9 (Version None)
Quarter: 2011Q4

REPORT INFORMATION
  Report Type: 
  Country: None (occurrence: None)
  Receive Date: 20111019
  Receipt Date: 20111017
  Transmission Date: 20120403
  Serious: Yes (Death, Hospitalization)
  Sender: FDA-Public Use
  Company Number: PHHY2011BR74041

PATIENT
  Age: 88 Year
  Sex: Female
  Weight: 50 kg

DRUGS (3)
  1. FORMOTEROL FUMARATE [Suspect]
     Dosage: UNK
  2. BUDESONIDE [Suspect]
     Dosage: 1 DF, BID
  3. ONBREZ [Suspect]
     Dosage: 1 DF, QD

REACTIONS (5)
  - CHRONIC OBSTRUCTIVE PULMONARY DISEASE [None]
  - MALNUTRITION [None]
  - CARDIAC FAILURE [None]
  - RESPIRATORY TRACT INFECTION [None]
  - GENERAL PHYSICAL HEALTH DETERIORATION [None]
